FAERS Safety Report 15260458 (Version 3)
Quarter: 2019Q2

REPORT INFORMATION
  Report Type: Spontaneous
  Country: JP (occurrence: JP)
  Receive Date: 20180809
  Receipt Date: 20190520
  Transmission Date: 20190711
  Serious: Yes (Death, Life-Threatening, Hospitalization)
  Sender: FDA-Public Use
  Company Number: JP-ACTELION-A-CH2017-156289

PATIENT
  Age: 76 Year
  Sex: Female
  Weight: 46 kg

DRUGS (22)
  1. VENTAVIS [Concomitant]
     Active Substance: ILOPROST
     Indication: PULMONARY ARTERIAL HYPERTENSION
  2. UPTRAVI [Suspect]
     Active Substance: SELEXIPAG
     Indication: PULMONARY ARTERIAL HYPERTENSION
     Dosage: 1.2 MG, BID
     Route: 048
     Dates: start: 20170426, end: 20170523
  3. SPIRONOLACTONE. [Concomitant]
     Active Substance: SPIRONOLACTONE
     Dosage: UNK
     Dates: start: 20170524
  4. ADOAIR [Concomitant]
     Active Substance: FLUTICASONE PROPIONATE\SALMETEROL XINAFOATE
  5. UPTRAVI [Suspect]
     Active Substance: SELEXIPAG
     Dosage: 0.4 MG, BID
     Route: 048
     Dates: start: 20170313, end: 20170316
  6. OPSUMIT [Suspect]
     Active Substance: MACITENTAN
     Indication: PULMONARY ARTERIAL HYPERTENSION
     Dosage: 10 MG, QD
     Route: 048
     Dates: start: 20160820, end: 20171120
  7. ADCIRCA [Concomitant]
     Active Substance: TADALAFIL
     Indication: PULMONARY ARTERIAL HYPERTENSION
     Dosage: 40 MG, QD
  8. WARFARIN [Concomitant]
     Active Substance: WARFARIN
     Dosage: 2.5 MG, QD
  9. AMLODIPINE [Concomitant]
     Active Substance: AMLODIPINE BESYLATE
     Indication: HYPERTENSION
     Dosage: 2.5 MG, QD
  10. NEXIUM [Concomitant]
     Active Substance: ESOMEPRAZOLE MAGNESIUM
     Indication: GASTROOESOPHAGEAL REFLUX DISEASE
     Dosage: 20 MG, QD
  11. BERASUS [Concomitant]
     Active Substance: BERAPROST SODIUM
  12. SPIRONOLACTON [Concomitant]
     Active Substance: SPIRONOLACTONE
  13. SPIRONOLACTONE. [Concomitant]
     Active Substance: SPIRONOLACTONE
     Indication: RIGHT VENTRICULAR FAILURE
     Dosage: 25 MG, QD
     Dates: start: 20170301, end: 20170412
  14. OXYGEN. [Concomitant]
     Active Substance: OXYGEN
  15. UPTRAVI [Suspect]
     Active Substance: SELEXIPAG
     Dosage: 1 MG, BID
     Route: 048
     Dates: start: 20170412, end: 20170425
  16. UPTRAVI [Suspect]
     Active Substance: SELEXIPAG
     Dosage: 2 MG, BID
     Route: 048
     Dates: start: 20170524, end: 20170525
  17. DIART [Concomitant]
     Active Substance: AZOSEMIDE
     Indication: RIGHT VENTRICULAR FAILURE
     Dosage: 90 MG, QD
  18. DIART [Concomitant]
     Active Substance: AZOSEMIDE
     Dosage: UNK
  19. FERROUS CITRATE NA [Concomitant]
     Active Substance: SODIUM FERROUS CITRATE
  20. UPTRAVI [Suspect]
     Active Substance: SELEXIPAG
     Dosage: 0.2 MG, BID
     Route: 048
     Dates: start: 20170306, end: 20170312
  21. UPTRAVI [Suspect]
     Active Substance: SELEXIPAG
     Dosage: 0.6 MG, BID
     Route: 048
     Dates: start: 20170317, end: 20170328
  22. UPTRAVI [Suspect]
     Active Substance: SELEXIPAG
     Dosage: 0.8 MG, BID
     Route: 048
     Dates: start: 20170329, end: 20170411

REACTIONS (9)
  - Cardio-respiratory arrest [Fatal]
  - Renal impairment [Not Recovered/Not Resolved]
  - Myalgia [Recovered/Resolved]
  - Oedema peripheral [Recovering/Resolving]
  - Nausea [Recovered/Resolved]
  - Pulmonary hypertension [Fatal]
  - Abdominal pain [Recovering/Resolving]
  - Cardiac failure [Recovering/Resolving]
  - Headache [Recovered/Resolved]

NARRATIVE: CASE EVENT DATE: 20170406
